FAERS Safety Report 9355029 (Version 1)
Quarter: 2013Q2

REPORT INFORMATION
  Report Type: Spontaneous
  Country: US (occurrence: US)
  Receive Date: 20130619
  Receipt Date: 20130619
  Transmission Date: 20140414
  Serious: Yes (Other)
  Sender: FDA-Public Use
  Company Number: US-ROCHE-1238691

PATIENT
  Sex: Male

DRUGS (1)
  1. TRASTUZUMAB [Suspect]
     Indication: SALIVARY GLAND CANCER
     Dosage: 8 CYCLES OF CHEMOTHERAPY ABOUT 2.5 YEARS AGO
     Route: 065

REACTIONS (1)
  - Malignant melanoma [Unknown]
